FAERS Safety Report 13683325 (Version 1)
Quarter: 2017Q2

REPORT INFORMATION
  Report Type: Spontaneous
  Country: US (occurrence: US)
  Receive Date: 20170623
  Receipt Date: 20170623
  Transmission Date: 20170830
  Serious: No
  Sender: FDA-Public Use
  Company Number: US-IPSEN BIOPHARMACEUTICALS, INC.-2016-09315

PATIENT
  Sex: Female
  Weight: 61 kg

DRUGS (3)
  1. DYSPORT [Suspect]
     Active Substance: ABOBOTULINUMTOXINA
     Indication: PRODUCT USE IN UNAPPROVED INDICATION
  2. DYSPORT [Suspect]
     Active Substance: ABOBOTULINUMTOXINA
     Indication: SKIN WRINKLING
     Dosage: NOT REPORTED
     Route: 065
     Dates: start: 20161031, end: 20161031
  3. DYSPORT [Suspect]
     Active Substance: ABOBOTULINUMTOXINA
     Indication: SKIN WRINKLING
     Dosage: 90 U
     Route: 065
     Dates: start: 20161011, end: 20161011

REACTIONS (4)
  - Drug ineffective [Unknown]
  - Intentional product misuse [Unknown]
  - Product quality issue [Unknown]
  - Inappropriate schedule of drug administration [Unknown]
